FAERS Safety Report 6994575-6 (Version None)
Quarter: 2010Q3

REPORT INFORMATION
  Report Type: 
  Country: None (occurrence: None)
  Receive Date: 20100916
  Receipt Date: 20100916
  Transmission Date: 20110219
  Serious: Yes (Other)
  Sender: FDA-Public Use
  Company Number: None

PATIENT

DRUGS (1)
  1. ARICEPT [Suspect]
     Dosage: 10 MG PO AT BEDTIME

REACTIONS (1)
  - RASH [None]
